FAERS Safety Report 7895308-1 (Version None)
Quarter: 2011Q4

REPORT INFORMATION
  Report Type: 
  Country: None (occurrence: None)
  Receive Date: 20111106
  Receipt Date: 20110825
  Transmission Date: 20120403
  Serious: Yes (Other)
  Sender: FDA-Public Use
  Company Number: US-AMGEN-USASP2011040502

PATIENT
  Age: 74 Year
  Sex: Male

DRUGS (3)
  1. ENBREL [Suspect]
     Indication: RHEUMATOID ARTHRITIS
     Dosage: 25 MG, QWK
     Dates: start: 20110526, end: 20110701
  2. ENBREL [Suspect]
     Dosage: 50 MG, QWK
     Dates: start: 20110701
  3. METHOTREXATE [Concomitant]
     Dosage: UNK

REACTIONS (4)
  - PLATELET COUNT DECREASED [None]
  - JOINT INJURY [None]
  - CONTUSION [None]
  - JOINT SWELLING [None]
